FAERS Safety Report 26070795 (Version 1)
Quarter: 2025Q4

REPORT INFORMATION
  Report Type: Spontaneous
  Country: US (occurrence: None)
  Receive Date: 20251120
  Receipt Date: 20251120
  Transmission Date: 20260118
  Serious: Yes (Life-Threatening, Disabling)
  Sender: FDA-CTU
  Company Number: None

PATIENT
  Age: 58 Year
  Sex: Female
  Weight: 49.5 kg

DRUGS (14)
  1. CIPROFLOXACIN [Suspect]
     Active Substance: CIPROFLOXACIN
     Indication: Urinary tract infection
     Dosage: FREQUENCY : TWICE A DAY;?
     Route: 048
     Dates: start: 20150827, end: 20150830
  2. CIPROFLOXACIN [Suspect]
     Active Substance: CIPROFLOXACIN
     Indication: Urinary tract infection
     Dates: start: 20190603, end: 20190613
  3. Synthetic [Concomitant]
  4. TEMAZEPAM [Concomitant]
     Active Substance: TEMAZEPAM
  5. red light therapy [Concomitant]
  6. VITAMINS [Concomitant]
     Active Substance: VITAMINS
  7. MAGNESIUM [Concomitant]
     Active Substance: MAGNESIUM
  8. COLLAGEN [Concomitant]
     Active Substance: COLLAGEN
  9. IRON [Concomitant]
     Active Substance: IRON
  10. KALE [Concomitant]
     Active Substance: KALE
  11. vitamin d with k glucosamine chondroi [Concomitant]
  12. o.ega 3 fatty acids [Concomitant]
  13. tumericitic [Concomitant]
  14. KLONOPIN [Concomitant]
     Active Substance: CLONAZEPAM

REACTIONS (15)
  - Neuropathy peripheral [None]
  - Electric shock sensation [None]
  - Tinnitus [None]
  - Rotator cuff syndrome [None]
  - Tendon rupture [None]
  - Muscle rupture [None]
  - Morton^s neuralgia [None]
  - Ligament injury [None]
  - Burning sensation [None]
  - Tendonitis [None]
  - Tendon disorder [None]
  - Calcinosis [None]
  - Cognitive disorder [None]
  - Depression [None]
  - Anxiety [None]

NARRATIVE: CASE EVENT DATE: 20200707
